FAERS Safety Report 6254861-4 (Version None)
Quarter: 2009Q3

REPORT INFORMATION
  Report Type: 
  Country: None (occurrence: None)
  Receive Date: 20090702
  Receipt Date: 20090624
  Transmission Date: 20100115
  Serious: Yes (Hospitalization)
  Sender: FDA-Public Use
  Company Number: DE-ABBOTT-09P-062-0581863-00

PATIENT
  Sex: Female

DRUGS (2)
  1. HUMIRA [Suspect]
     Indication: RHEUMATOID ARTHRITIS
     Route: 058
     Dates: start: 20070928, end: 20090220
  2. HUMIRA [Suspect]
     Route: 058
     Dates: start: 20090508

REACTIONS (2)
  - MENISCUS LESION [None]
  - RHEUMATOID ARTHRITIS [None]
